FAERS Safety Report 24444667 (Version 2)
Quarter: 2024Q4

REPORT INFORMATION
  Report Type: Report from Study
  Country: US (occurrence: US)
  Receive Date: 20241016
  Receipt Date: 20241017
  Transmission Date: 20250115
  Serious: No
  Sender: ROCHE
  Company Number: US-ROCHE-2857179

PATIENT
  Age: 59 Year
  Sex: Male

DRUGS (1)
  1. RITUXAN [Suspect]
     Active Substance: RITUXIMAB
     Indication: Myelitis transverse
     Dosage: 2 TREATMENTS EVERY 6 MONTHS?DATE OF TREATMENT: 21/DEC/2020, 01/MAY/2021, 13/DEC/2021, 22/JUN/2021,30
     Route: 065

REACTIONS (2)
  - Off label use [Unknown]
  - No adverse event [Unknown]
